FAERS Safety Report 7842248-X (Version None)
Quarter: 2011Q4

REPORT INFORMATION
  Report Type: 
  Country: None (occurrence: None)
  Receive Date: 20111025
  Receipt Date: 20111018
  Transmission Date: 20120403
  Serious: Yes (Other)
  Sender: FDA-Public Use
  Company Number: FR-PFIZER INC-2011252643

PATIENT
  Age: 51 Year
  Sex: Male

DRUGS (1)
  1. CRIZOTINIB [Suspect]
     Dosage: 250 MG, 2X/DAY
     Route: 048

REACTIONS (4)
  - PLEURISY [None]
  - HYPONATRAEMIA [None]
  - ANAEMIA [None]
  - PYOPNEUMOTHORAX [None]
